FAERS Safety Report 7244573-2 (Version None)
Quarter: 2011Q1

REPORT INFORMATION
  Report Type: 
  Country: None (occurrence: None)
  Receive Date: 20110125
  Receipt Date: 20110119
  Transmission Date: 20110831
  Serious: Yes (Other)
  Sender: FDA-Public Use
  Company Number: JP-PFIZER INC-2010151375

PATIENT
  Age: 68 Year
  Sex: Female
  Weight: 41 kg

DRUGS (12)
  1. LIPITOR [Suspect]
     Indication: HYPERCHOLESTEROLAEMIA
     Dosage: 10 MG, 1X/DAY
     Route: 048
     Dates: start: 20100902, end: 20101111
  2. CLARITHROMYCIN [Suspect]
     Indication: GASTRIC ULCER
     Dosage: 200 MG, 1X/DAY
     Route: 048
     Dates: start: 20101014
  3. NOIDOUBLE [Concomitant]
     Indication: POLYURIA
     Dosage: 25 MG, 1X/DAY
     Route: 048
     Dates: start: 19920508
  4. LANSOPRAZOLE [Suspect]
     Route: 048
  5. TRIAZOLAM [Concomitant]
     Indication: INSOMNIA
     Dosage: 0.25 MG, 1X/DAY
     Route: 048
     Dates: start: 20020704
  6. VERAPAMIL HCL [Concomitant]
     Indication: ARRHYTHMIA
     Dosage: 40 MG, 4X/DAY
     Route: 048
     Dates: start: 19920508
  7. MUCOSTA [Concomitant]
     Indication: GASTRITIS
     Dosage: 100 MG, 3X/DAY
     Route: 048
     Dates: start: 20020704
  8. OMEPRAL [Suspect]
     Indication: GASTRIC ULCER
     Dosage: 20 MG, 1X/DAY
     Route: 048
     Dates: start: 20101014
  9. WARFARIN [Concomitant]
     Indication: CARDIAC VALVE DISEASE
     Dosage: 1 MG, 1X/DAY
     Route: 048
     Dates: start: 19920508, end: 20101025
  10. LANIRAPID [Concomitant]
     Dosage: 0.1 MG, 1X/DAY
     Route: 048
     Dates: start: 19920508
  11. FUROSEMIDE [Concomitant]
     Indication: POLYURIA
     Dosage: 20 MG, 1X/DAY
     Route: 048
     Dates: start: 19920508
  12. WARFARIN [Concomitant]
     Indication: ANTICOAGULANT THERAPY

REACTIONS (4)
  - HAEMORRHAGE SUBCUTANEOUS [None]
  - COAGULATION TEST ABNORMAL [None]
  - HELICOBACTER INFECTION [None]
  - ANAEMIA [None]
